FAERS Safety Report 19896748 (Version 1)
Quarter: 2021Q3

REPORT INFORMATION
  Report Type: Other
  Country: IT (occurrence: IT)
  Receive Date: 20210930
  Receipt Date: 20210930
  Transmission Date: 20211014
  Serious: Yes (Life-Threatening, Hospitalization)
  Sender: FDA-Public Use
  Company Number: IT-ROCHE-2923452

PATIENT

DRUGS (2)
  1. RITUXIMAB. [Suspect]
     Active Substance: RITUXIMAB
     Indication: B-CELL LYMPHOMA
     Dosage: AS MAINTENANCE
     Route: 042
     Dates: start: 202008, end: 202008
  2. RITUXIMAB. [Suspect]
     Active Substance: RITUXIMAB
     Dosage: FIRST?LINE THRAPY WITH BENDAMUSTINE
     Route: 042
     Dates: start: 201812, end: 201905

REACTIONS (1)
  - COVID-19 [Recovered/Resolved]

NARRATIVE: CASE EVENT DATE: 20201207
